FAERS Safety Report 5140340-4 (Version None)
Quarter: 2006Q4

REPORT INFORMATION
  Report Type: 
  Country: None (occurrence: None)
  Receive Date: 20061031
  Receipt Date: 20061025
  Transmission Date: 20070319
  Serious: Yes (Life-Threatening)
  Sender: FDA-Public Use
  Company Number: 2006AP05108

PATIENT
  Age: 28 Year
  Sex: Female
  Weight: 66 kg

DRUGS (6)
  1. MARCAINE [Suspect]
     Indication: SPINAL ANAESTHESIA
  2. ANAPEINE [Suspect]
     Indication: EPIDURAL ANAESTHESIA
     Route: 008
  3. OXYTOCIN [Concomitant]
  4. METHERGINE [Concomitant]
     Route: 042
  5. DIAZEPAM [Concomitant]
     Indication: SEDATION
     Route: 042
  6. FUROSEMIDE [Concomitant]
     Route: 042

REACTIONS (3)
  - DRUG EXPOSURE DURING PREGNANCY [None]
  - MITRAL VALVE INCOMPETENCE [None]
  - PERIPARTUM CARDIOMYOPATHY [None]
